FAERS Safety Report 5368026-1 (Version None)
Quarter: 2007Q2

REPORT INFORMATION
  Report Type: 
  Country: None (occurrence: None)
  Receive Date: 20070622
  Receipt Date: 20070612
  Transmission Date: 20071010
  Serious: Yes (Other)
  Sender: FDA-Public Use
  Company Number: US-PFIZER INC-2007048629

PATIENT
  Age: 74 Year
  Sex: Female

DRUGS (1)
  1. PREGABALIN [Suspect]
     Dosage: DAILY DOSE:300MG

REACTIONS (3)
  - AMNESIA [None]
  - ANXIETY [None]
  - NEUROPATHY [None]
